FAERS Safety Report 5639005-1 (Version None)
Quarter: 2008Q1

REPORT INFORMATION
  Report Type: 
  Country: None (occurrence: None)
  Receive Date: 20080226
  Receipt Date: 20080214
  Transmission Date: 20080703
  Serious: Yes (Other)
  Sender: FDA-Public Use
  Company Number: PHBS2008CA02243

PATIENT
  Age: 26 Year
  Sex: Male

DRUGS (2)
  1. CLOZAPINE [Suspect]
     Indication: PSYCHOTIC DISORDER
     Dosage: 100 MG, BID
     Route: 065
  2. ALUMINUM HYDROXIDE GEL [Suspect]
     Indication: ABDOMINAL PAIN UPPER

REACTIONS (5)
  - ABDOMINAL PAIN UPPER [None]
  - ANTIPSYCHOTIC DRUG LEVEL INCREASED [None]
  - DROOLING [None]
  - DRUG INTERACTION [None]
  - SOMNOLENCE [None]
